FAERS Safety Report 22097476 (Version 1)
Quarter: 2023Q1

REPORT INFORMATION
  Report Type: Spontaneous
  Country: US (occurrence: US)
  Receive Date: 20230315
  Receipt Date: 20230315
  Transmission Date: 20230417
  Serious: Yes (Death)
  Sender: FDA-Public Use
  Company Number: US-AMNEAL PHARMACEUTICALS-2023-AMRX-00747

PATIENT
  Sex: Male

DRUGS (5)
  1. RYTARY [Suspect]
     Active Substance: CARBIDOPA\LEVODOPA
     Indication: Product used for unknown indication
     Dosage: 2 CAPSULES(23.75/95 MG), 3 /DAY
     Route: 048
  2. RYTARY [Suspect]
     Active Substance: CARBIDOPA\LEVODOPA
     Dosage: 23.75-95 MG TAKE 4 CAPSULES BY MOUTH EVERY MORNING, TAKE 3 CAPSULES BY MOUTH IN MIDDAY, AND TAKE 3 C
     Route: 048
     Dates: start: 20220608
  3. RYTARY [Suspect]
     Active Substance: CARBIDOPA\LEVODOPA
     Dosage: 48.75MG-195MG 2 CAPSULES IN THE MORNING, 1 CAPSULE AT 11AM, 1 CAPSULE AT 4PM
     Route: 048
     Dates: start: 20221018
  4. RYTARY [Suspect]
     Active Substance: CARBIDOPA\LEVODOPA
     Dosage: 195MG TAKE 1 CAPSULE BY MOUTH TWICE DAILY AT 11 AM AND 4PM AND 23.75195MG: TAKE 1 CAPSULE BY MOUTH T
     Route: 048
     Dates: start: 20221101
  5. RYTARY [Suspect]
     Active Substance: CARBIDOPA\LEVODOPA
     Dosage: 48.75-195MG TAKE 2 CAPS EVERY MORNING, 1 CAP AT 11AM, AND 1 CAP AT 4PM AND 23.75-95MG TAKE 1 CAP TWI
     Route: 048

REACTIONS (1)
  - Adverse event [Fatal]
